FAERS Safety Report 6084004-1 (Version None)
Quarter: 2009Q1

REPORT INFORMATION
  Report Type: 
  Country: None (occurrence: None)
  Receive Date: 20090204
  Receipt Date: 20071016
  Transmission Date: 20090719
  Serious: No
  Sender: FDA-Public Use
  Company Number: 268611

PATIENT
  Age: 69 Year
  Sex: Male

DRUGS (1)
  1. NOVOLOG [Suspect]
     Indication: INSULIN-REQUIRING TYPE 2 DIABETES MELLITUS
     Dosage: SUBCUTANEOUS
     Route: 058
     Dates: start: 20070801

REACTIONS (2)
  - APHASIA [None]
  - VISION BLURRED [None]
